FAERS Safety Report 5885190-6 (Version None)
Quarter: 2008Q3

REPORT INFORMATION
  Report Type: 
  Country: None (occurrence: None)
  Receive Date: 20080915
  Receipt Date: 20080915
  Transmission Date: 20090109
  Serious: No
  Sender: FDA-Public Use
  Company Number: None

PATIENT
  Age: 55 Year
  Sex: Female
  Weight: 45.3597 kg

DRUGS (1)
  1. CEFUROXIME AXETIL [Suspect]
     Indication: PHARYNGITIS
     Dosage: 1 TAB TWICE DAILY
     Dates: start: 20080830, end: 20080906

REACTIONS (4)
  - ABDOMINAL PAIN UPPER [None]
  - DIARRHOEA [None]
  - MUCOUS STOOLS [None]
  - MUSCLE SPASMS [None]
